FAERS Safety Report 26148148 (Version 1)
Quarter: 2025Q4

REPORT INFORMATION
  Report Type: Spontaneous
  Country: CA (occurrence: CA)
  Receive Date: 20251212
  Receipt Date: 20251212
  Transmission Date: 20260118
  Serious: Yes (Hospitalization)
  Sender: AUROBINDO
  Company Number: CA-MLMSERVICE-20240826-PI172308-00249-1

PATIENT
  Age: 69 Year
  Sex: Female

DRUGS (5)
  1. OXALIPLATIN [Suspect]
     Active Substance: OXALIPLATIN
     Indication: Colon cancer
     Dosage: 189 MILLIGRAM, 2 HOURS
  2. ATORVASTATIN [Concomitant]
     Active Substance: ATORVASTATIN
     Indication: Product used for unknown indication
     Dosage: 40 MILLIGRAM, ONCE A DAY
     Route: 065
  3. FLUTICASONE, SALMETE [Concomitant]
     Indication: Product used for unknown indication
     Dosage: UNK, TWO TIMES A DAY (AS NEEDED)
  4. ONDANSETRON [Concomitant]
     Active Substance: ONDANSETRON
     Indication: Product used for unknown indication
     Dosage: 8 MILLIGRAM 1 TOTAL (SINGLE DOSES, RECEIVED TWENTY MINUTES PRIOR TO HER FIRST OXALIPLATIN INFUSION)
     Route: 065
  5. DEXAMETHASONE [Concomitant]
     Active Substance: DEXAMETHASONE
     Indication: Product used for unknown indication
     Dosage: 12 MILLIGRAM 1 TOTAL (SINGLE DOSES, RECEIVED TWENTY MINUTES PRIOR TO HER FIRST OXALIPLATIN INFUSION)
     Route: 065

REACTIONS (1)
  - Stress cardiomyopathy [Recovering/Resolving]
